FAERS Safety Report 21815898 (Version 37)
Quarter: 2024Q1

REPORT INFORMATION
  Report Type: Report from Study
  Country: CA (occurrence: CA)
  Receive Date: 20230104
  Receipt Date: 20240321
  Transmission Date: 20240410
  Serious: Yes (Other)
  Sender: FDA-Public Use
  Company Number: CA-TAKEDA-2022TUS023084

PATIENT
  Sex: Male

DRUGS (30)
  1. IDURSULFASE [Suspect]
     Active Substance: IDURSULFASE
     Indication: Mucopolysaccharidosis II
     Dosage: UNK
     Route: 050
     Dates: start: 202111
  2. IDURSULFASE [Suspect]
     Active Substance: IDURSULFASE
     Dosage: 10 MILLIGRAM, 1/WEEK
     Route: 050
     Dates: start: 20220815
  3. IDURSULFASE [Suspect]
     Active Substance: IDURSULFASE
     Dosage: 12 MILLIGRAM, Q2WEEKS
     Route: 042
  4. IDURSULFASE [Suspect]
     Active Substance: IDURSULFASE
     Dosage: 10 MILLIGRAM, 1/WEEK
     Route: 050
  5. IDURSULFASE [Suspect]
     Active Substance: IDURSULFASE
     Dosage: 2 DOSAGE FORM, 1/WEEK
     Route: 050
  6. IDURSULFASE [Suspect]
     Active Substance: IDURSULFASE
     Dosage: 9.7 MILLIGRAM, 1/WEEK
     Route: 050
  7. IDURSULFASE [Suspect]
     Active Substance: IDURSULFASE
     Dosage: 9.7 MILLIGRAM, 1/WEEK
     Route: 050
  8. IDURSULFASE [Suspect]
     Active Substance: IDURSULFASE
     Dosage: 9.7 MILLIGRAM, 1/WEEK
     Route: 050
  9. IDURSULFASE [Suspect]
     Active Substance: IDURSULFASE
     Dosage: 2 DOSAGE FORM, 1/WEEK
     Route: 050
  10. IDURSULFASE [Suspect]
     Active Substance: IDURSULFASE
     Dosage: 9.7 MILLIGRAM, 1/WEEK
     Route: 050
  11. IDURSULFASE [Suspect]
     Active Substance: IDURSULFASE
     Dosage: 9.7 MILLIGRAM, 1/WEEK
     Route: 042
  12. IDURSULFASE [Suspect]
     Active Substance: IDURSULFASE
     Dosage: 12 MILLIGRAM
     Route: 050
  13. IDURSULFASE [Suspect]
     Active Substance: IDURSULFASE
     Dosage: 9.7 MILLIGRAM, 1/WEEK
     Route: 050
  14. IDURSULFASE [Suspect]
     Active Substance: IDURSULFASE
     Dosage: 12 MILLIGRAM, 1/WEEK
     Route: 050
  15. IDURSULFASE [Suspect]
     Active Substance: IDURSULFASE
     Dosage: 12 MILLIGRAM
     Route: 050
  16. IDURSULFASE [Suspect]
     Active Substance: IDURSULFASE
     Dosage: 12 GRAM, 1/WEEK
     Route: 042
  17. IDURSULFASE [Suspect]
     Active Substance: IDURSULFASE
     Dosage: 12 MILLIGRAM, 1/WEEK
     Route: 050
  18. IDURSULFASE [Suspect]
     Active Substance: IDURSULFASE
     Dosage: 12 MILLIGRAM, 1/WEEK
     Route: 050
  19. IDURSULFASE [Suspect]
     Active Substance: IDURSULFASE
     Dosage: 12 MILLIGRAM, 1/WEEK
     Route: 050
  20. IDURSULFASE [Suspect]
     Active Substance: IDURSULFASE
     Dosage: 12 MILLIGRAM, 1/WEEK
     Route: 058
  21. IDURSULFASE [Suspect]
     Active Substance: IDURSULFASE
     Dosage: 2 DOSAGE FORM, 1/WEEK
     Route: 050
  22. IDURSULFASE [Suspect]
     Active Substance: IDURSULFASE
     Dosage: 12 MILLIGRAM, 1/WEEK
     Route: 050
  23. IDURSULFASE [Suspect]
     Active Substance: IDURSULFASE
     Dosage: 12 MILLIGRAM, 1/WEEK
     Route: 050
  24. IDURSULFASE [Suspect]
     Active Substance: IDURSULFASE
     Dosage: 12 MILLIGRAM, 1/WEEK
     Route: 050
  25. PREVACID [Concomitant]
     Active Substance: LANSOPRAZOLE
     Dosage: 15 MILLIGRAM, BID
     Route: 065
     Dates: start: 20230418
  26. ALBUTEROL [Concomitant]
     Active Substance: ALBUTEROL
     Dosage: 100 MICROGRAM
     Route: 055
  27. FLUTICASONE [Concomitant]
     Active Substance: FLUTICASONE
     Dosage: 125 MICROGRAM
     Route: 055
  28. OMEGA 3 [Concomitant]
     Active Substance: CAPSAICIN
     Dosage: 5 MILLILITER, QD
     Route: 048
  29. VENTOLIN [Concomitant]
     Active Substance: ALBUTEROL SULFATE
     Dosage: UNK
     Route: 055
     Dates: start: 20230515
  30. Omega [Concomitant]
     Dosage: 35 MILLIGRAM
     Route: 048

REACTIONS (45)
  - Pulmonary congestion [Not Recovered/Not Resolved]
  - Pneumonitis [Unknown]
  - Asthmatic crisis [Recovering/Resolving]
  - Bronchiolitis [Recovered/Resolved]
  - Pneumonia [Recovered/Resolved]
  - Pyrexia [Recovered/Resolved]
  - Respiratory rate increased [Unknown]
  - Productive cough [Recovered/Resolved]
  - Poor venous access [Unknown]
  - Aggression [Unknown]
  - Oropharyngeal pain [Not Recovered/Not Resolved]
  - Rhinorrhoea [Not Recovered/Not Resolved]
  - Polydipsia [Not Recovered/Not Resolved]
  - Malaise [Not Recovered/Not Resolved]
  - Blood pressure decreased [Unknown]
  - Respiratory rate decreased [Recovered/Resolved]
  - Otorrhoea [Unknown]
  - Agitation [Unknown]
  - Abnormal behaviour [Unknown]
  - Nasopharyngitis [Unknown]
  - Multiple allergies [Recovered/Resolved]
  - Infusion site induration [Not Recovered/Not Resolved]
  - Sneezing [Recovered/Resolved]
  - Infusion site extravasation [Unknown]
  - Wound [Recovering/Resolving]
  - Gastrointestinal disorder [Recovering/Resolving]
  - Drug ineffective [Not Recovered/Not Resolved]
  - Device breakage [Unknown]
  - Infusion site inflammation [Not Recovered/Not Resolved]
  - Fatigue [Recovering/Resolving]
  - Ear infection [Not Recovered/Not Resolved]
  - Vomiting [Recovering/Resolving]
  - Diarrhoea [Recovering/Resolving]
  - Dyspnoea [Recovered/Resolved]
  - Cough [Recovering/Resolving]
  - Infusion site swelling [Not Recovered/Not Resolved]
  - Flushing [Not Recovered/Not Resolved]
  - Erythema [Unknown]
  - Carpal tunnel syndrome [Recovering/Resolving]
  - Nasal congestion [Recovered/Resolved]
  - Product distribution issue [Unknown]
  - Intentional removal of drug delivery system by patient [Unknown]
  - Incorrect dose administered [Unknown]
  - Product dose omission issue [Unknown]
  - Inappropriate schedule of product administration [Unknown]

NARRATIVE: CASE EVENT DATE: 20220101
